FAERS Safety Report 8622030-6 (Version None)
Quarter: 2012Q3

REPORT INFORMATION
  Report Type: 
  Country: None (occurrence: None)
  Receive Date: 20120823
  Receipt Date: 20120823
  Transmission Date: 20120928
  Serious: No
  Sender: FDA-Public Use
  Company Number: None

PATIENT
  Age: 70 Year
  Sex: Male
  Weight: 117.9352 kg

DRUGS (2)
  1. RAPAFLO [Suspect]
     Indication: NEPHROLITHIASIS
     Dates: start: 20120802, end: 20120805
  2. RAPAFLO [Suspect]
     Indication: BENIGN PROSTATIC HYPERPLASIA
     Dates: start: 20120802, end: 20120805

REACTIONS (1)
  - ANGIOEDEMA [None]
